FAERS Safety Report 9563433 (Version 1)
Quarter: 2013Q1

REPORT INFORMATION
  Report Type: Spontaneous
  Country: US (occurrence: None)
  Receive Date: 20121214
  Receipt Date: 20121214
  Transmission Date: 20140127
  Serious: Yes (Hospitalization)
  Sender: FDA-Public Use
  Company Number: 1201USA03546

PATIENT
  Age: 57 Year
  Sex: Female

DRUGS (9)
  1. JANUVIA [Suspect]
     Indication: TYPE 2 DIABETES MELLITUS
     Route: 048
     Dates: start: 2011, end: 20120124
  2. SEPAMIT (NIFEDIPINE) [Concomitant]
  3. EFFIENT (PRASUGREL HYDROCHLORIDE) [Concomitant]
  4. CRESTOR (ROSUVASTATIN CALCIUM) [Concomitant]
  5. METOPROLOL [Concomitant]
  6. TRICOR (FENOFIBRATE) [Concomitant]
  7. CARVEDILOL [Concomitant]
  8. GLIPIZIDE [Concomitant]
  9. MK-9378 (METFORMIN) [Concomitant]

REACTIONS (1)
  - Abdominal pain upper [None]
